FAERS Safety Report 13567008 (Version 1)
Quarter: 2017Q2

REPORT INFORMATION
  Report Type: Report from Study
  Country: US (occurrence: US)
  Receive Date: 20170522
  Receipt Date: 20170522
  Transmission Date: 20170830
  Serious: Yes (Other)
  Sender: FDA-Public Use
  Company Number: US-AMGEN-USASL2017076221

PATIENT
  Age: 72 Year
  Sex: Female

DRUGS (1)
  1. ENBREL [Suspect]
     Active Substance: ETANERCEPT
     Indication: PSORIASIS
     Dosage: 50 MG, 2 TIMES/WK
     Route: 065

REACTIONS (7)
  - Knee arthroplasty [Unknown]
  - Trigger finger [Unknown]
  - Limb operation [Unknown]
  - Carpal tunnel syndrome [Unknown]
  - Tenosynovitis stenosans [Unknown]
  - Tendon operation [Unknown]
  - Surgery [Unknown]
